FAERS Safety Report 7932372-5 (Version None)
Quarter: 2011Q4

REPORT INFORMATION
  Report Type: 
  Country: None (occurrence: None)
  Receive Date: 20111121
  Receipt Date: 20111108
  Transmission Date: 20120403
  Serious: Yes (Other)
  Sender: FDA-Public Use
  Company Number: GB-MYLANLABS-2011S1023263

PATIENT
  Age: 52 Year
  Sex: Female

DRUGS (12)
  1. LAMOTRIGINE [Suspect]
     Indication: EPILEPSY
     Route: 065
  2. BENDROFLUMETHIAZIDE [Suspect]
     Route: 065
  3. GLICLAZIDE [Concomitant]
     Route: 065
  4. ENALAPRIL MALEATE [Concomitant]
     Route: 065
  5. AMLODIPINE [Concomitant]
     Route: 065
  6. ATENOLOL [Concomitant]
     Route: 065
  7. DIPYRIDAMOLE [Concomitant]
     Route: 065
  8. ATORVASTATIN [Concomitant]
     Route: 065
  9. CITALOPRAM HYDROBROMIDE [Suspect]
     Route: 065
  10. CARBAMAZEPINE [Suspect]
     Indication: EPILEPSY
     Dosage: 600MG
     Route: 065
  11. METFORMIN HCL [Concomitant]
     Route: 065
  12. ASPIRIN [Concomitant]
     Route: 065

REACTIONS (4)
  - HYPERAMMONAEMIA [None]
  - HYPOKALAEMIA [None]
  - HYPONATRAEMIA [None]
  - CONFUSIONAL STATE [None]
